FAERS Safety Report 25925593 (Version 1)
Quarter: 2025Q4

REPORT INFORMATION
  Report Type: Spontaneous
  Country: US (occurrence: None)
  Receive Date: 20251014
  Receipt Date: 20251014
  Transmission Date: 20260118
  Serious: Yes (Death)
  Sender: FDA-CTU
  Company Number: None

PATIENT
  Age: 71 Year
  Sex: Female

DRUGS (12)
  1. MYCOPHENOLIC ACID [Suspect]
     Active Substance: MYCOPHENOLIC ACID
     Indication: Lung transplant
     Dosage: 720 MG BID ORAL
     Route: 048
     Dates: start: 20240801
  2. TACROLIMUS [Suspect]
     Active Substance: TACROLIMUS
     Indication: Lung transplant
     Dosage: 1.5 MG BID ORAL?
     Route: 048
     Dates: start: 20240604
  3. FAMOTIDINE [Concomitant]
     Active Substance: FAMOTIDINE
  4. VITAMIN D 1,000IU H/PTNCY CAPSULES [Concomitant]
  5. ATROVENT HFA ORAL INHALER (200 INH) [Concomitant]
  6. BREOELLIPTA 100-25MCG ORAL INH(30) [Concomitant]
  7. SYMBICORT 80/4.5MCG (120 ORAL INH) [Concomitant]
  8. AZITHROMYCIN [Concomitant]
     Active Substance: AZITHROMYCIN
  9. DAPSONE [Concomitant]
     Active Substance: DAPSONE
  10. PREDNISONE [Concomitant]
     Active Substance: PREDNISONE
  11. VALGANCICLOVIR 450MG TABLETS [Concomitant]
  12. MONTELUKAST SODIUM [Concomitant]
     Active Substance: MONTELUKAST SODIUM

REACTIONS (1)
  - Death [None]

NARRATIVE: CASE EVENT DATE: 20250907
